FAERS Safety Report 16370358 (Version 2)
Quarter: 2019Q2

REPORT INFORMATION
  Report Type: Spontaneous
  Country: BR (occurrence: BR)
  Receive Date: 20190530
  Receipt Date: 20190531
  Transmission Date: 20190711
  Serious: Yes (Other)
  Sender: FDA-Public Use
  Company Number: BR-ALEXION-A201908052

PATIENT
  Age: 17 Year
  Sex: Male

DRUGS (1)
  1. SOLIRIS [Suspect]
     Active Substance: ECULIZUMAB
     Indication: ATYPICAL HAEMOLYTIC URAEMIC SYNDROME
     Route: 065

REACTIONS (9)
  - Proteinuria [Unknown]
  - Fibrosis [Unknown]
  - Blood creatinine increased [Unknown]
  - Haemoglobin decreased [Unknown]
  - Renal impairment [Unknown]
  - Angiopathy [Unknown]
  - Blood lactate dehydrogenase increased [Unknown]
  - Hypertension [Unknown]
  - Platelet count abnormal [Unknown]
